FAERS Safety Report 16105244 (Version 1)
Quarter: 2019Q1

REPORT INFORMATION
  Report Type: Report from Study
  Country: US (occurrence: US)
  Receive Date: 20190322
  Receipt Date: 20190322
  Transmission Date: 20190418
  Serious: Yes (Congenital Anomaly, Other)
  Sender: FDA-Public Use
  Company Number: US-UCBSA-2019010976

PATIENT
  Age: 0 Year
  Sex: Male
  Weight: 2.25 kg

DRUGS (9)
  1. CERTOLIZUMAB PEGOL RA [Suspect]
     Active Substance: CERTOLIZUMAB PEGOL
     Indication: CROHN^S DISEASE
     Dosage: 400 MG, MONTHLY (QM)
     Route: 064
     Dates: start: 20120701, end: 20131010
  2. CLOMID [Concomitant]
     Active Substance: CLOMIPHENE CITRATE
     Indication: PREGNANCY
     Route: 064
  3. DHA [Concomitant]
     Active Substance: DIETARY SUPPLEMENT
     Indication: VITAMIN SUPPLEMENTATION
     Dosage: 1 DF, ONCE DAILY (QD)
     Route: 064
     Dates: start: 20130124, end: 20131010
  4. FOLIC ACID. [Concomitant]
     Active Substance: FOLIC ACID
     Indication: CROHN^S DISEASE
     Dosage: 3 MG, ONCE DAILY (QD)
     Route: 064
     Dates: start: 20130124, end: 20131010
  5. PRENATAL VITAMINS [Concomitant]
     Active Substance: VITAMINS
     Dosage: 1 DF, ONCE DAILY (QD)
     Route: 064
     Dates: start: 20130124, end: 20131010
  6. PRENATAL VITAMINS [Concomitant]
     Active Substance: VITAMINS
     Indication: PRODUCT USED FOR UNKNOWN INDICATION
     Dosage: UNK
     Dates: start: 2012
  7. PREDNISONE. [Concomitant]
     Active Substance: PREDNISONE
     Dosage: 2 DF, ONCE DAILY (QD)
     Route: 064
     Dates: start: 20131010, end: 20131010
  8. PREDNISONE. [Concomitant]
     Active Substance: PREDNISONE
     Dosage: 3 DF, ONCE DAILY (QD)
     Route: 064
     Dates: start: 20131003, end: 20131009
  9. PREDNISONE. [Concomitant]
     Active Substance: PREDNISONE
     Indication: CROHN^S DISEASE
     Dosage: 4 DF, ONCE DAILY (QD)
     Route: 064
     Dates: start: 20130926, end: 20131002

REACTIONS (3)
  - Low birth weight baby [Unknown]
  - Microcephaly [Unknown]
  - Foetal exposure during pregnancy [Unknown]

NARRATIVE: CASE EVENT DATE: 2013
